FAERS Safety Report 10143821 (Version 2)
Quarter: 2014Q2

REPORT INFORMATION
  Report Type: Spontaneous
  Country: FR (occurrence: FR)
  Receive Date: 20140430
  Receipt Date: 20140618
  Transmission Date: 20141212
  Serious: Yes (Hospitalization)
  Sender: FDA-Public Use
  Company Number: FR-GLAXOSMITHKLINE-B0989538A

PATIENT
  Age: 67 Year
  Sex: Male

DRUGS (8)
  1. TAFINLAR [Suspect]
     Indication: METASTATIC MALIGNANT MELANOMA
     Route: 048
     Dates: start: 20140330, end: 20140401
  2. VALSARTAN [Concomitant]
     Route: 065
  3. NEBIVOLOL [Concomitant]
     Route: 065
  4. INEXIUM [Concomitant]
     Route: 065
  5. FENOFIBRATE [Concomitant]
     Route: 065
  6. ALFUZOSINE [Concomitant]
     Route: 065
  7. LAMALINE [Concomitant]
     Route: 065
  8. VEMURAFENIB [Concomitant]
     Route: 065

REACTIONS (2)
  - Pancreatitis acute [Recovered/Resolved with Sequelae]
  - Abdominal pain [Recovered/Resolved with Sequelae]
